FAERS Safety Report 8619409 (Version 2)
Quarter: 2013Q2

REPORT INFORMATION
  Report Type: Spontaneous
  Country: US (occurrence: US)
  Receive Date: 20120618
  Receipt Date: 20130418
  Transmission Date: 20140414
  Serious: Yes (Life-Threatening, Hospitalization)
  Sender: FDA-Public Use
  Company Number: US-BAYER-2012-057340

PATIENT
  Sex: Female

DRUGS (14)
  1. YAZ [Suspect]
  2. YASMIN [Suspect]
  3. OCELLA [Suspect]
  4. ALPRAZOLAM [Concomitant]
     Dosage: UNK
     Dates: start: 20100503
  5. ANAFRANIL [Concomitant]
     Dosage: UNK
     Dates: start: 20100503
  6. BUDEPRION [Concomitant]
     Dosage: UNK
     Dates: start: 20100503
  7. KLONOPIN [Concomitant]
     Dosage: UNK
     Dates: start: 20100503
  8. METFORMIN [Concomitant]
     Dosage: UNK
     Dates: start: 20100503
  9. NASOCORT [Concomitant]
     Dosage: UNK
     Dates: start: 20100503
  10. CLARITIN [Concomitant]
  11. CLONAZEPAM [Concomitant]
  12. CYMBALTA [Concomitant]
  13. LORATADINE [Concomitant]
  14. MULTIVITAMINS [Concomitant]

REACTIONS (9)
  - Cerebrovascular accident [None]
  - Injury [None]
  - Pain [None]
  - General physical health deterioration [None]
  - Anxiety [None]
  - Anhedonia [None]
  - Emotional distress [None]
  - Pain [None]
  - Subarachnoid haemorrhage [Recovered/Resolved]
